FAERS Safety Report 9445971 (Version 8)
Quarter: 2014Q1

REPORT INFORMATION
  Report Type: Report from Study
  Country: BR (occurrence: BR)
  Receive Date: 20130807
  Receipt Date: 20140321
  Transmission Date: 20141002
  Serious: Yes (Hospitalization)
  Sender: FDA-Public Use
  Company Number: BR-009507513-1307BRA017258

PATIENT
  Age: 78 Year
  Sex: Female
  Weight: 57 kg

DRUGS (11)
  1. DEXAMETHASONE [Suspect]
     Indication: PLASMA CELL MYELOMA
     Dosage: UNK UNK, CYCLICAL
     Route: 048
     Dates: start: 20130514, end: 20130625
  2. DEXAMETHASONE [Suspect]
     Dosage: UNK, CYCLICAL
     Route: 048
     Dates: start: 20130730
  3. BORTEZOMIB [Suspect]
     Indication: PLASMA CELL MYELOMA
     Dosage: 1.3 MG/M2, CYCLICAL
     Route: 058
     Dates: start: 20130514, end: 20130625
  4. BORTEZOMIB [Suspect]
     Dosage: 0.7 MG/M2, CYCLICAL
     Route: 058
     Dates: start: 20130730
  5. ENALAPRIL MALEATE [Concomitant]
     Indication: HYPERTENSION
     Dosage: UNK UNK, UNKNOWN
     Dates: start: 2005
  6. FUROSEMIDE [Concomitant]
     Indication: HYPERTENSION
     Dosage: UNK UNK, UNKNOWN
     Dates: start: 200910
  7. DIGOXIN [Concomitant]
     Indication: HYPERTENSION
     Dosage: UNK UNK, UNKNOWN
     Dates: start: 201010
  8. SPIRONOLACTONE [Concomitant]
     Indication: HYPERTENSION
     Dosage: UNK
     Dates: start: 2005
  9. LEVOTHYROXINE SODIUM [Concomitant]
     Indication: HYPOTHYROIDISM
     Dosage: UNK, UNKNOWN
     Dates: start: 20111124
  10. CINNARIZINE [Concomitant]
     Indication: LABYRINTHITIS
     Dosage: UNK, UNKNOWN
     Dates: start: 200910
  11. CINNARIZINE [Concomitant]
     Indication: HYPERTENSION

REACTIONS (5)
  - Urinary tract infection [Recovered/Resolved]
  - Cardiac failure [Recovered/Resolved]
  - Pneumonia [Recovered/Resolved]
  - Bronchopneumonia [Recovered/Resolved]
  - Urinary tract infection [Recovered/Resolved]
